FAERS Safety Report 5123248-X (Version None)
Quarter: 2006Q4

REPORT INFORMATION
  Report Type: 
  Country: None (occurrence: None)
  Receive Date: 20061005
  Receipt Date: 20060817
  Transmission Date: 20070319
  Serious: Yes (Hospitalization)
  Sender: FDA-Public Use
  Company Number: 2006082164

PATIENT
  Age: 54 Year
  Sex: Male
  Weight: 52 kg

DRUGS (13)
  1. SUTENT [Suspect]
     Indication: RENAL CELL CARCINOMA STAGE UNSPECIFIED
     Dosage: SEE IMAGE, ORAL
     Route: 048
     Dates: start: 20060405, end: 20060413
  2. SUTENT [Suspect]
     Indication: RENAL CELL CARCINOMA STAGE UNSPECIFIED
     Dosage: SEE IMAGE, ORAL
     Route: 048
     Dates: start: 20060425
  3. FENTANYL [Concomitant]
  4. SODIUM PICOSULFATE (SODIUM PICOSULFATE) [Concomitant]
  5. TRIAMCINOLONE ACETONIDE [Concomitant]
  6. FERROUS CITRATE [Concomitant]
  7. BROTIZOLAM (BROTIZOLAM) [Concomitant]
  8. DEXAMETHASONE TAB [Concomitant]
  9. POVIDONE IODINE [Concomitant]
  10. LANOCONAZOLE (LANOCONAZOLE) [Concomitant]
  11. REBAMIPIDE (REBAMIPIDE) [Concomitant]
  12. LOXOPROFEN SODIUM (LOXOPROFEN SODIUM) [Concomitant]
  13. IOPAMIDOL [Concomitant]

REACTIONS (6)
  - ANAEMIA [None]
  - CONDITION AGGRAVATED [None]
  - DISEASE PROGRESSION [None]
  - HYPERCALCAEMIA [None]
  - METASTASES TO BONE [None]
  - RENAL CANCER METASTATIC [None]
